FAERS Safety Report 7626456-9 (Version None)
Quarter: 2011Q3

REPORT INFORMATION
  Report Type: 
  Country: None (occurrence: None)
  Receive Date: 20110721
  Receipt Date: 20110715
  Transmission Date: 20111222
  Serious: Yes (Other)
  Sender: FDA-Public Use
  Company Number: US-PFIZER INC-2011160890

PATIENT
  Sex: Male

DRUGS (2)
  1. DILANTIN-125 [Suspect]
     Dosage: 150 MG, 2X/DAY
  2. VIMPAT [Concomitant]
     Dosage: UNK

REACTIONS (2)
  - FOOD INTERACTION [None]
  - CONVULSION [None]
